FAERS Safety Report 10758400 (Version 1)
Quarter: 2015Q1

REPORT INFORMATION
  Report Type: Spontaneous
  Country: US (occurrence: US)
  Receive Date: 20150203
  Receipt Date: 20150203
  Transmission Date: 20150721
  Serious: No
  Sender: FDA-Public Use
  Company Number: US-ELI_LILLY_AND_COMPANY-US201501006566

PATIENT
  Sex: Female

DRUGS (11)
  1. PROZAC [Suspect]
     Active Substance: FLUOXETINE HYDROCHLORIDE
     Indication: PRODUCT USED FOR UNKNOWN INDICATION
     Dosage: UNK, UNKNOWN
     Route: 065
  2. MORPHINE [Concomitant]
     Active Substance: MORPHINE
     Dosage: UNK, UNKNOWN
     Route: 065
  3. EFFEXOR [Concomitant]
     Active Substance: VENLAFAXINE HYDROCHLORIDE
     Dosage: UNK, UNKNOWN
     Route: 065
  4. METHOTREXATE [Concomitant]
     Active Substance: METHOTREXATE
     Dosage: UNK, UNKNOWN
     Route: 065
  5. LYRICA [Concomitant]
     Active Substance: PREGABALIN
     Dosage: UNK, UNKNOWN
     Route: 065
  6. FOLBEE [Concomitant]
     Dosage: UNK, UNKNOWN
     Route: 065
  7. HUMIRA [Concomitant]
     Active Substance: ADALIMUMAB
     Dosage: UNK, UNKNOWN
     Route: 065
  8. XANAX [Concomitant]
     Active Substance: ALPRAZOLAM
     Dosage: UNK, UNKNOWN
     Route: 065
  9. FOLIC ACID. [Concomitant]
     Active Substance: FOLIC ACID
     Dosage: UNK, UNKNOWN
     Route: 065
  10. KEPPRA [Concomitant]
     Active Substance: LEVETIRACETAM
     Dosage: UNK, UNKNOWN
     Route: 065
  11. VITAMIN B [Concomitant]
     Active Substance: VITAMIN B
     Dosage: UNK, UNKNOWN
     Route: 065

REACTIONS (1)
  - Temperature regulation disorder [Unknown]
